FAERS Safety Report 4798492-1 (Version None)
Quarter: 2005Q4

REPORT INFORMATION
  Report Type: 
  Country: None (occurrence: None)
  Receive Date: 20051014
  Receipt Date: 20051003
  Transmission Date: 20060501
  Serious: Yes (Hospitalization)
  Sender: FDA-Public Use
  Company Number: US-MERCK-0510USA02503

PATIENT
  Age: 44 Year
  Sex: Female
  Weight: 75 kg

DRUGS (11)
  1. VIOXX [Suspect]
     Indication: ARTHRITIS
     Route: 048
     Dates: start: 20000101, end: 20040101
  2. VIOXX [Suspect]
     Indication: BACK PAIN
     Route: 048
     Dates: start: 20000101, end: 20040101
  3. QUININE [Concomitant]
     Route: 065
  4. TRICOR [Concomitant]
     Route: 065
  5. LIPITOR [Concomitant]
     Route: 065
  6. PROVIGIL [Concomitant]
     Route: 065
  7. PROZAC [Concomitant]
     Route: 065
  8. TRAZODONE HYDROCHLORIDE [Concomitant]
     Route: 065
  9. METHADONE HYDROCHLORIDE [Concomitant]
     Route: 065
  10. HYDROCHLOROTHIAZIDE [Concomitant]
     Route: 065
  11. ZOLOFT [Concomitant]
     Route: 065
     Dates: start: 20000101

REACTIONS (3)
  - CHRONIC OBSTRUCTIVE PULMONARY DISEASE [None]
  - MYOCARDIAL INFARCTION [None]
  - PULMONARY EMBOLISM [None]
